FAERS Safety Report 7064798-9 (Version None)
Quarter: 2010Q4

REPORT INFORMATION
  Report Type: 
  Country: None (occurrence: None)
  Receive Date: 20101027
  Receipt Date: 20101014
  Transmission Date: 20110411
  Serious: Yes (Other)
  Sender: FDA-Public Use
  Company Number: CA-ELI_LILLY_AND_COMPANY-CA201009005618

PATIENT
  Sex: Female
  Weight: 57.596 kg

DRUGS (2)
  1. CYMBALTA [Suspect]
     Indication: FIBROMYALGIA
     Dosage: 60 MG, DAILY (1/D)
     Route: 048
     Dates: start: 20100623
  2. TYLENOL EXTRA STRENGTH [Concomitant]
     Dosage: UNK, AS NEEDED

REACTIONS (1)
  - RETINAL DETACHMENT [None]
